FAERS Safety Report 9836974 (Version 1)
Quarter: 2013Q4

REPORT INFORMATION
  Report Type: Spontaneous
  Country: US (occurrence: None)
  Receive Date: 20131121
  Receipt Date: 20131121
  Transmission Date: 20140711
  Serious: No
  Sender: FDA-Public Use
  Company Number: 1000048114

PATIENT
  Sex: Male

DRUGS (1)
  1. TUDORZA PRESSAIR (ACLINDINIUM BROMIDE) (400 MICROGRAM, POWDER) [Suspect]

REACTIONS (2)
  - Feeling jittery [None]
  - Formication [None]
